FAERS Safety Report 8935598 (Version 2)
Quarter: 2013Q4

REPORT INFORMATION
  Report Type: Spontaneous
  Country: US (occurrence: US)
  Receive Date: 20121130
  Receipt Date: 20131220
  Transmission Date: 20140711
  Serious: Yes (Other)
  Sender: FDA-Public Use
  Company Number: US-BAYER-2012-124979

PATIENT
  Age: 24 Year
  Sex: Female

DRUGS (4)
  1. YAZ [Suspect]
  2. YASMIN [Suspect]
  3. OCELLA [Suspect]
  4. PREVACID [Concomitant]

REACTIONS (6)
  - Cholecystectomy [None]
  - Cholecystitis [None]
  - Emotional distress [None]
  - Pain [None]
  - Injury [None]
  - Pain [None]
